FAERS Safety Report 19848154 (Version 1)
Quarter: 2021Q3

REPORT INFORMATION
  Report Type: Report from Study
  Country: JP (occurrence: JP)
  Receive Date: 20210918
  Receipt Date: 20210918
  Transmission Date: 20211014
  Serious: Yes (Death)
  Sender: FDA-Public Use
  Company Number: JP-JNJFOC-20210934088

PATIENT
  Age: 65 Year
  Sex: Female

DRUGS (16)
  1. OXYGEN. [Concomitant]
     Active Substance: OXYGEN
     Indication: PULMONARY ARTERIAL HYPERTENSION
  2. TRAZENTA [Concomitant]
     Active Substance: LINAGLIPTIN
  3. BROTIZOLAM [Concomitant]
     Active Substance: BROTIZOLAM
  4. CLARITHROMYCIN. [Concomitant]
     Active Substance: CLARITHROMYCIN
  5. NEXIUM HP [Concomitant]
     Active Substance: AMOXICILLIN\CLARITHROMYCIN\ESOMEPRAZOLE
  6. ALLERMIST [Concomitant]
     Active Substance: FLUTICASONE FUROATE
  7. VENTAVIS [Suspect]
     Active Substance: ILOPROST
     Indication: PULMONARY ARTERIAL HYPERTENSION
     Route: 042
     Dates: start: 20200604
  8. BAKTAR [Concomitant]
     Active Substance: SULFAMETHOXAZOLE\TRIMETHOPRIM
  9. AMBROXOL HYDROCHLORIDE [Concomitant]
     Active Substance: AMBROXOL HYDROCHLORIDE
  10. ALENDRONATE [Concomitant]
     Active Substance: ALENDRONATE SODIUM
  11. PREDONINE [Concomitant]
     Active Substance: PREDNISOLONE
  12. MAGLAX [MAGNESIUM OXIDE] [Concomitant]
  13. SPIOLTO [Concomitant]
     Active Substance: OLODATEROL HYDROCHLORIDE\TIOTROPIUM BROMIDE MONOHYDRATE
  14. SENNASID [SENNOSIDE A+B] [Concomitant]
  15. VENTAVIS [Suspect]
     Active Substance: ILOPROST
     Indication: SJOGREN^S SYNDROME
  16. THYRADIN [Concomitant]
     Active Substance: LEVOTHYROXINE

REACTIONS (2)
  - Death [Fatal]
  - Inappropriate schedule of product administration [Unknown]

NARRATIVE: CASE EVENT DATE: 20200604
